FAERS Safety Report 8153844-7 (Version None)
Quarter: 2012Q1

REPORT INFORMATION
  Report Type: 
  Country: None (occurrence: None)
  Receive Date: 20120221
  Receipt Date: 20120209
  Transmission Date: 20120608
  Serious: Yes (Death, Hospitalization, Other)
  Sender: FDA-Public Use
  Company Number: US-ELI_LILLY_AND_COMPANY-US201202002866

PATIENT
  Sex: Female

DRUGS (2)
  1. HUMALOG [Concomitant]
     Indication: DIABETES MELLITUS
  2. FORTEO [Suspect]

REACTIONS (5)
  - AORTIC VALVE DISEASE [None]
  - DEATH [None]
  - MYOCARDIAL INFARCTION [None]
  - DIALYSIS [None]
  - TREATMENT FAILURE [None]
